FAERS Safety Report 5399683-1 (Version None)
Quarter: 2007Q3

REPORT INFORMATION
  Report Type: 
  Country: None (occurrence: None)
  Receive Date: 20070727
  Receipt Date: 20070725
  Transmission Date: 20080115
  Serious: Yes (Life-Threatening, Other)
  Sender: FDA-Public Use
  Company Number: JP-ABBOTT-07P-087-0371345-00

PATIENT
  Age: 50 Year
  Sex: Female

DRUGS (17)
  1. SEVOFLURANE [Suspect]
     Indication: ANAESTHESIA
     Dosage: 1-5%
     Route: 055
     Dates: start: 20060927, end: 20060928
  2. SEVOFLURANE [Suspect]
     Indication: MAINTENANCE OF ANAESTHESIA
  3. FENTANYL TRANSDERMAL SYSTEM [Suspect]
     Indication: ANAESTHESIA
     Route: 042
     Dates: start: 20060927, end: 20060927
  4. FENTANYL TRANSDERMAL SYSTEM [Suspect]
     Indication: MAINTENANCE OF ANAESTHESIA
     Route: 042
     Dates: start: 20060927, end: 20060927
  5. FENTANYL TRANSDERMAL SYSTEM [Suspect]
     Indication: ANALGESIC THERAPY
  6. NITROUS OXIDE [Concomitant]
     Indication: ANAESTHESIA
     Dosage: UNKNOWN
     Route: 055
  7. THIAMYLAL SODIUM [Concomitant]
     Indication: INDUCTION OF ANAESTHESIA
     Route: 042
     Dates: start: 20060927, end: 20060927
  8. ATROPINE SULFATE [Concomitant]
     Indication: DRUG USE FOR UNKNOWN INDICATION
     Route: 042
     Dates: start: 20060927, end: 20060928
  9. ATROPINE SULFATE [Concomitant]
     Route: 042
     Dates: start: 20060927, end: 20060927
  10. SUXAMETHONIUM CHLORIDE [Concomitant]
     Indication: MUSCLE RELAXANT THERAPY
     Route: 042
     Dates: start: 20060927, end: 20060927
  11. DILTIAZEM HCL [Concomitant]
     Indication: DRUG USE FOR UNKNOWN INDICATION
     Route: 042
     Dates: start: 20060927, end: 20060928
  12. DILTIAZEM HCL [Concomitant]
     Route: 042
     Dates: start: 20060927, end: 20060928
  13. EPHEDRINE HYDROCHLORIDE [Concomitant]
     Indication: DRUG USE FOR UNKNOWN INDICATION
     Route: 042
     Dates: start: 20060927, end: 20060928
  14. VECURONIUM BROMIDE [Concomitant]
     Indication: MUSCLE RELAXANT THERAPY
     Route: 042
     Dates: start: 20060927, end: 20060928
  15. VECURONIUM BROMIDE [Concomitant]
     Route: 042
     Dates: start: 20060927, end: 20060928
  16. VECURONIUM BROMIDE [Concomitant]
     Route: 042
     Dates: start: 20060927, end: 20060928
  17. NEOSTIGMINE METILSULFATE [Concomitant]
     Indication: NEUROMUSCULAR BLOCKADE REVERSAL
     Route: 042
     Dates: start: 20060928, end: 20060928

REACTIONS (2)
  - PROCEDURAL COMPLICATION [None]
  - TORSADE DE POINTES [None]
